FAERS Safety Report 15160548 (Version 1)
Quarter: 2018Q3

REPORT INFORMATION
  Report Type: Spontaneous
  Country: US (occurrence: US)
  Receive Date: 20180718
  Receipt Date: 20180718
  Transmission Date: 20181010
  Serious: Yes (Hospitalization)
  Sender: FDA-Public Use
  Company Number: US-FRESENIUS KABI-FK201807970

PATIENT
  Age: 26 Year
  Sex: Male

DRUGS (8)
  1. BORTEZOMIB (MANUFACTURER UNKNOWN) [Suspect]
     Active Substance: BORTEZOMIB
     Indication: GLOMERULONEPHRITIS PROLIFERATIVE
     Dosage: 1,3 MG/M2 ON DAYS 1,4,8 AND 11 (CYCLE LENGTH 21 DAYS, FOR TWO CYCLES)
     Route: 058
  2. DEXAMETHASONE. [Suspect]
     Active Substance: DEXAMETHASONE
     Dosage: 20 MG ON DAYS 1,8 AND 15 (CYCLE LENGTH 28 DAYS, FOR ONE CYCLE)
     Route: 048
  3. BORTEZOMIB (MANUFACTURER UNKNOWN) [Suspect]
     Active Substance: BORTEZOMIB
     Dosage: 1,3 MG/M2 ON DAYS 1,8 AND 15 (CYCLE LENGTH 28 DAYS, FOR ONE CYCLE)
     Route: 058
  4. CYCLOPHOSPHAMIDE. [Concomitant]
     Active Substance: CYCLOPHOSPHAMIDE
     Indication: GLOMERULONEPHRITIS PROLIFERATIVE
     Dosage: DURING FIRST TREATMENT REGIMEN (CYCLE LENGTH 21 DAYS, FOR TWO CYCLES)
     Route: 065
  5. CYCLOPHOSPHAMIDE. [Concomitant]
     Active Substance: CYCLOPHOSPHAMIDE
     Dosage: CYCLE LENGTH 28 DAYS, FOR ONE CYCLE
     Route: 065
  6. RITUXIMAB. [Concomitant]
     Active Substance: RITUXIMAB
     Dosage: ON DAY 1 (CYCLE LENGTH 28 DAYS, FOR ONE CYCLE)
     Route: 041
  7. DEXAMETHASONE. [Suspect]
     Active Substance: DEXAMETHASONE
     Indication: GLOMERULONEPHRITIS PROLIFERATIVE
     Dosage: 20MG ON DAYS 1,4,8 AND 11 (CYCLE LENGTH 21 DAYS, FOR TWO CYCLES)
     Route: 048
  8. RITUXIMAB. [Concomitant]
     Active Substance: RITUXIMAB
     Indication: GLOMERULONEPHRITIS PROLIFERATIVE
     Dosage: ON DAY 1 (CYCLE LENGTH 21 DAYS, FOR TWO CYCLES)
     Route: 041

REACTIONS (1)
  - Fluid overload [Unknown]
